FAERS Safety Report 17280697 (Version 1)
Quarter: 2020Q1

REPORT INFORMATION
  Report Type: Spontaneous
  Country: DK (occurrence: DK)
  Receive Date: 20200117
  Receipt Date: 20200117
  Transmission Date: 20200409
  Serious: Yes (Life-Threatening)
  Sender: FDA-Public Use
  Company Number: DK-TEVA-2020-DK-1167995

PATIENT
  Age: 85 Year
  Sex: Male

DRUGS (6)
  1. BETOLVEX [Concomitant]
     Active Substance: CYANOCOBALAMIN
     Indication: VITAMIN B12 DEFICIENCY
     Dosage: STRENGTH: 1 MG.
     Route: 048
     Dates: start: 20140122
  2. STESOLID [Suspect]
     Active Substance: DIAZEPAM
     Indication: DELIRIUM
     Dosage: DOSE: RECEIVED 2.5 MG THREE TIMES, A TOTAL OF 7.5 MG. ?STRENGTH: 5 MG/ML
     Route: 042
     Dates: start: 20191217, end: 20191218
  3. PANODIL [Concomitant]
     Active Substance: ACETAMINOPHEN
     Indication: PAIN
     Dosage: DOSE: TO BE TAKEN WHEN REQUIRED, NOT MORE THAN 4 TIMES. ?STRENGTH: 500 MG.
     Route: 048
     Dates: start: 20171015
  4. APOVIT B-COMBIN [Concomitant]
     Indication: VITAMIN SUPPLEMENTATION
     Route: 048
     Dates: start: 20131119
  5. DONEPEZIL ^SANDOZ^ [Concomitant]
     Indication: DEMENTIA
     Dosage: STRENGTH: 10 MG.
     Route: 048
     Dates: start: 20171018
  6. SINEMET [Concomitant]
     Active Substance: CARBIDOPA\LEVODOPA
     Indication: PARKINSONISM
     Dosage: STRENGTH: 100 + 25 MG.
     Route: 048
     Dates: start: 20150513

REACTIONS (4)
  - Altered state of consciousness [Recovering/Resolving]
  - Coma scale abnormal [Recovering/Resolving]
  - Hallucination, visual [Recovering/Resolving]
  - Delirium [Recovering/Resolving]

NARRATIVE: CASE EVENT DATE: 20191218
